FAERS Safety Report 14562635 (Version 1)
Quarter: 2018Q1

REPORT INFORMATION
  Report Type: Spontaneous
  Country: US (occurrence: US)
  Receive Date: 20180221
  Receipt Date: 20180221
  Transmission Date: 20180509
  Serious: No
  Sender: FDA-Public Use
  Company Number: None

PATIENT
  Age: 55 Year
  Sex: Female

DRUGS (1)
  1. ENBREL [Suspect]
     Active Substance: ETANERCEPT

REACTIONS (5)
  - Pain in extremity [None]
  - Drug dose omission [None]
  - Condition aggravated [None]
  - Alopecia [None]
  - Peripheral swelling [None]

NARRATIVE: CASE EVENT DATE: 20180205
